FAERS Safety Report 6741721-5 (Version None)
Quarter: 2010Q2

REPORT INFORMATION
  Report Type: 
  Country: None (occurrence: None)
  Receive Date: 20100526
  Receipt Date: 20100513
  Transmission Date: 20101027
  Serious: Yes (Other)
  Sender: FDA-Public Use
  Company Number: US-ELI_LILLY_AND_COMPANY-US201005004060

PATIENT
  Age: 20 Year
  Sex: Female

DRUGS (2)
  1. PROZAC [Suspect]
     Indication: ANXIETY
     Dosage: 1 D/F, UNK
  2. PROZAC [Suspect]
     Dosage: 20 MG, DAILY (1/D)
     Dates: end: 20100511

REACTIONS (4)
  - CHEST PAIN [None]
  - DISTURBANCE IN ATTENTION [None]
  - DYSPNOEA [None]
  - MALAISE [None]
